FAERS Safety Report 6048841-1 (Version None)
Quarter: 2009Q1

REPORT INFORMATION
  Report Type: 
  Country: None (occurrence: None)
  Receive Date: 20090123
  Receipt Date: 20090119
  Transmission Date: 20090719
  Serious: Yes (Death)
  Sender: FDA-Public Use
  Company Number: JP-ASTRAZENECA-2008AP05730

PATIENT
  Age: 75 Year
  Sex: Male

DRUGS (7)
  1. CRESTOR [Suspect]
     Indication: HYPERCHOLESTEROLAEMIA
     Route: 048
     Dates: start: 20080523, end: 20080719
  2. NORVASC [Concomitant]
     Route: 048
  3. MICARDIS [Concomitant]
     Dosage: DOSE UNKNOWN
     Route: 048
  4. FLOMOX [Concomitant]
     Route: 048
  5. LOXONIN [Concomitant]
     Route: 048
  6. DASEN [Concomitant]
     Route: 048
  7. SELBEX [Concomitant]
     Route: 048

REACTIONS (2)
  - BLOOD CREATINE PHOSPHOKINASE INCREASED [None]
  - DEATH [None]
